FAERS Safety Report 12384509 (Version 1)
Quarter: 2016Q2

REPORT INFORMATION
  Report Type: Spontaneous
  Country: US (occurrence: US)
  Receive Date: 20160519
  Receipt Date: 20160519
  Transmission Date: 20160815
  Serious: No
  Sender: FDA-Public Use
  Company Number: US-TEVA-655502USA

PATIENT
  Age: 33 Year
  Sex: Female

DRUGS (2)
  1. NYSTATIN. [Suspect]
     Active Substance: NYSTATIN
     Indication: ABDOMINAL DISTENSION
     Dosage: 500,000 UNITS
     Route: 048
     Dates: start: 20160328
  2. NYSTATIN. [Suspect]
     Active Substance: NYSTATIN
     Indication: DYSPEPSIA

REACTIONS (3)
  - Product quality issue [Unknown]
  - Abdominal pain upper [Unknown]
  - Product use issue [Unknown]
